FAERS Safety Report 5049084-0 (Version None)
Quarter: 2006Q2

REPORT INFORMATION
  Report Type: 
  Country: None (occurrence: None)
  Receive Date: 20060601
  Receipt Date: 20060412
  Transmission Date: 20061013
  Serious: No
  Sender: FDA-Public Use
  Company Number: US200602005250

PATIENT
  Age: 78 Year
  Sex: Female

DRUGS (1)
  1. CYMBALTA [Suspect]
     Indication: NEURALGIA
     Dosage: 30 MG, DAILY (1/D)
     Dates: start: 20050919, end: 20060115

REACTIONS (2)
  - URINARY RETENTION [None]
  - URINARY TRACT INFECTION [None]
